FAERS Safety Report 9217985 (Version 2)
Quarter: 2014Q1

REPORT INFORMATION
  Report Type: Spontaneous
  Country: AR (occurrence: AR)
  Receive Date: 20130408
  Receipt Date: 20140107
  Transmission Date: 20141002
  Serious: No
  Sender: FDA-Public Use
  Company Number: AR-PFIZER INC-2013108452

PATIENT
  Age: 13 Year
  Sex: Male

DRUGS (2)
  1. GENOTROPIN [Suspect]
     Indication: GROWTH HORMONE DEFICIENCY
     Dosage: 1 TO 1.4 MG, 7X/WEEK
     Dates: start: 20120301
  2. GENOTROPIN [Suspect]
     Dosage: 1.6 MG, UNK (ON SUNDAYS)

REACTIONS (1)
  - Drug effect incomplete [Not Recovered/Not Resolved]
